FAERS Safety Report 17161015 (Version 1)
Quarter: 2019Q4

REPORT INFORMATION
  Report Type: Spontaneous
  Country: KR (occurrence: KR)
  Receive Date: 20191216
  Receipt Date: 20191216
  Transmission Date: 20200122
  Serious: Yes (Other)
  Sender: FDA-Public Use
  Company Number: KR-BAUSCH-BL-2019-063735

PATIENT
  Age: 58 Year
  Sex: Male

DRUGS (3)
  1. HUMAN IMMUNOGLOBULIN [Concomitant]
     Indication: IMMUNE THROMBOCYTOPENIC PURPURA
     Route: 042
     Dates: start: 2008, end: 2008
  2. PREDNISOLONE. [Suspect]
     Active Substance: PREDNISOLONE
     Indication: IMMUNE THROMBOCYTOPENIC PURPURA
     Route: 048
     Dates: start: 2008, end: 2008
  3. PREDNISOLONE. [Suspect]
     Active Substance: PREDNISOLONE
     Route: 048
     Dates: start: 2008

REACTIONS (1)
  - Kaposi^s sarcoma [Recovering/Resolving]

NARRATIVE: CASE EVENT DATE: 2008
